FAERS Safety Report 23433627 (Version 1)
Quarter: 2024Q1

REPORT INFORMATION
  Report Type: Spontaneous
  Country: US (occurrence: US)
  Receive Date: 20240123
  Receipt Date: 20240123
  Transmission Date: 20240409
  Serious: No
  Sender: FDA-Public Use
  Company Number: US-BAYER-2024A012178

PATIENT
  Sex: Female

DRUGS (1)
  1. CLARITIN LIQUI-GELS [Suspect]
     Active Substance: LORATADINE
     Dosage: 2 LIQUID GELS AT MORNING AND 2 LIQUID GELS AT NIGHT
     Route: 048
     Dates: start: 20240118

REACTIONS (1)
  - Product prescribing issue [None]

NARRATIVE: CASE EVENT DATE: 20240118
